FAERS Safety Report 17483207 (Version 1)
Quarter: 2020Q1

REPORT INFORMATION
  Report Type: Spontaneous
  Country: US (occurrence: US)
  Receive Date: 20200228
  Receipt Date: 20200228
  Transmission Date: 20200409
  Serious: Yes (Other)
  Sender: FDA-Public Use
  Company Number: None

PATIENT
  Age: 25 Year
  Sex: Female
  Weight: 121.5 kg

DRUGS (1)
  1. THERMACARE ULTRA [Suspect]
     Active Substance: CAMPHOR (SYNTHETIC)\CAPSICUM OLEORESIN\MENTHOL\METHYL SALICYLATE
     Indication: ARTHRALGIA
     Route: 061
     Dates: start: 20200228, end: 20200228

REACTIONS (7)
  - Application site vesicles [None]
  - Paraesthesia [None]
  - Application site swelling [None]
  - Burns second degree [None]
  - Application site erythema [None]
  - Burns first degree [None]
  - Application site warmth [None]

NARRATIVE: CASE EVENT DATE: 20200228
